FAERS Safety Report 9629582 (Version 3)
Quarter: 2014Q1

REPORT INFORMATION
  Report Type: Spontaneous
  Country: NO (occurrence: NO)
  Receive Date: 20131017
  Receipt Date: 20140221
  Transmission Date: 20141002
  Serious: Yes (Death, Hospitalization, Other)
  Sender: FDA-Public Use
  Company Number: NO-TEVA-436032ISR

PATIENT
  Sex: 0

DRUGS (19)
  1. TRAMADOL [Suspect]
  2. PARACETAMOL [Interacting]
     Route: 048
  3. ACETYLSALICYLIC ACID [Interacting]
     Route: 048
  4. FENTANYL [Interacting]
  5. SIMVASTATIN [Interacting]
  6. MORPHINE [Interacting]
  7. OXYCODONE [Interacting]
  8. ANTIMICROBIAL (UNSPECIFIED) [Interacting]
  9. OXAZEPAM [Interacting]
  10. NONSTEROIDAL ANTI-INFLAMMATORY DRUG (UNSPECIFIED) [Interacting]
  11. HYDROCHLOROTHIAZIDE [Interacting]
  12. DIGITOXIN [Interacting]
  13. MIDAZOLAM [Interacting]
  14. DIAZEPAM [Interacting]
  15. DIURETIC (UNSPECIFIED) [Interacting]
  16. KETOBEMIDONE [Interacting]
  17. BUPRENORPHINE [Interacting]
  18. WARFARIN SODIUM [Interacting]
     Route: 048
  19. CORTICOSTEROIDS (UNSPECIFIED) [Interacting]

REACTIONS (2)
  - Death [Fatal]
  - Drug interaction [Unknown]
